FAERS Safety Report 9268571 (Version 1)
Quarter: 2013Q2

REPORT INFORMATION
  Report Type: Spontaneous
  Country: US (occurrence: US)
  Receive Date: 20130502
  Receipt Date: 20130502
  Transmission Date: 20140414
  Serious: Yes (Other)
  Sender: FDA-Public Use
  Company Number: US-FRI-1000044776

PATIENT
  Age: 78 Year
  Sex: Female

DRUGS (3)
  1. BYSTOLIC [Suspect]
     Indication: HYPERTENSION
     Dosage: 5 MG
     Route: 048
     Dates: start: 2013
  2. BYSTOLIC [Suspect]
     Indication: HEART VALVE REPLACEMENT
  3. LISINOPRIL [Suspect]

REACTIONS (1)
  - Eye infection [Recovered/Resolved]
